FAERS Safety Report 14580027 (Version 1)
Quarter: 2018Q1

REPORT INFORMATION
  Report Type: Report from Study
  Country: US (occurrence: US)
  Receive Date: 20180228
  Receipt Date: 20180228
  Transmission Date: 20180509
  Serious: Yes (Hospitalization)
  Sender: FDA-Public Use
  Company Number: US-ROCHE-1903008

PATIENT
  Age: 68 Year
  Sex: Female
  Weight: 98.52 kg

DRUGS (27)
  1. ESBRIET [Suspect]
     Active Substance: PIRFENIDONE
     Dosage: TAKING 3 CAPSULES 3 TIMES PER DAY
     Route: 048
     Dates: start: 20170328
  2. PREDNISONE. [Concomitant]
     Active Substance: PREDNISONE
  3. TEMAZEPAM. [Concomitant]
     Active Substance: TEMAZEPAM
  4. FLUCONAZOLE. [Concomitant]
     Active Substance: FLUCONAZOLE
  5. GABAPENTIN. [Concomitant]
     Active Substance: GABAPENTIN
  6. JARDIANCE [Concomitant]
     Active Substance: EMPAGLIFLOZIN
     Route: 065
  7. ROPINIROLE HYDROCHLORIDE. [Concomitant]
     Active Substance: ROPINIROLE HYDROCHLORIDE
  8. ACETAMINOPHEN/HYDROCODONE [Concomitant]
     Active Substance: ACETAMINOPHEN\HYDROCODONE
  9. OXYGEN. [Concomitant]
     Active Substance: OXYGEN
     Indication: IDIOPATHIC PULMONARY FIBROSIS
     Dosage: 24 HOURS INTERVAL
     Route: 055
  10. METOCLOPRAMIDE HCL [Concomitant]
     Active Substance: METOCLOPRAMIDE HYDROCHLORIDE
  11. TIKOSYN [Concomitant]
     Active Substance: DOFETILIDE
     Indication: ATRIAL FIBRILLATION
     Dosage: BEEN TAKING IT FOR SEVERAL YEARS
     Route: 048
  12. SOTALOL HCL [Concomitant]
     Active Substance: SOTALOL
  13. POTASSIUM CHLORIDE, CONTROLLED RELEASE [Concomitant]
  14. ESBRIET [Suspect]
     Active Substance: PIRFENIDONE
     Dosage: AS DIRECTED BY PHYSICIAN
     Route: 048
  15. PHENERGAN [Concomitant]
     Active Substance: PROMETHAZINE HYDROCHLORIDE
     Route: 065
  16. GLYBURIDE. [Concomitant]
     Active Substance: GLYBURIDE
  17. DILTIAZEM HCL CR [Concomitant]
  18. ESBRIET [Suspect]
     Active Substance: PIRFENIDONE
     Dosage: TAKING 3 CAPSULES 3 TIMES PER DAY
     Route: 048
     Dates: start: 201703
  19. ESBRIET [Suspect]
     Active Substance: PIRFENIDONE
     Dosage: TAKING 2 CAPSULES 3 TIMES PER DAY
     Route: 048
  20. BISOPROLOL FUMARATE. [Concomitant]
     Active Substance: BISOPROLOL FUMARATE
  21. PRADAXA [Concomitant]
     Active Substance: DABIGATRAN ETEXILATE MESYLATE
  22. FUROSEMIDE. [Concomitant]
     Active Substance: FUROSEMIDE
  23. TEMAZEPAM. [Concomitant]
     Active Substance: TEMAZEPAM
  24. ESBRIET [Suspect]
     Active Substance: PIRFENIDONE
     Indication: IDIOPATHIC PULMONARY FIBROSIS
     Route: 048
     Dates: start: 20170214
  25. OMEPRAZOLE. [Concomitant]
     Active Substance: OMEPRAZOLE
  26. SIMVASTATIN. [Concomitant]
     Active Substance: SIMVASTATIN
  27. METFORMIN [Concomitant]
     Active Substance: METFORMIN HYDROCHLORIDE
     Indication: DIABETES MELLITUS
     Route: 048
     Dates: start: 201703

REACTIONS (12)
  - Cerebrovascular accident [Not Recovered/Not Resolved]
  - Breast pain [Unknown]
  - Pollakiuria [Unknown]
  - Nausea [Recovered/Resolved]
  - Vomiting [Recovered/Resolved]
  - Nausea [Not Recovered/Not Resolved]
  - Decreased appetite [Recovered/Resolved]
  - Fungal infection [Not Recovered/Not Resolved]
  - Diarrhoea [Recovered/Resolved]
  - Urinary tract infection [Not Recovered/Not Resolved]
  - Diarrhoea [Recovered/Resolved]
  - Insomnia [Not Recovered/Not Resolved]

NARRATIVE: CASE EVENT DATE: 20170228
